FAERS Safety Report 9832049 (Version 1)
Quarter: 2014Q1

REPORT INFORMATION
  Report Type: Report from Study
  Country: DE (occurrence: DE)
  Receive Date: 20140121
  Receipt Date: 20140121
  Transmission Date: 20141002
  Serious: Yes (Hospitalization)
  Sender: FDA-Public Use
  Company Number: DE-PFIZER INC-2014015661

PATIENT
  Age: 53 Year
  Sex: Male
  Weight: 65 kg

DRUGS (3)
  1. CISPLATIN [Suspect]
     Indication: SMALL CELL LUNG CANCER
     Dosage: DAY 1 (89 MG/M2)
     Dates: start: 201311
  2. ETOPOSIDE [Suspect]
     Indication: SMALL CELL LUNG CANCER
     Dosage: DAY 1, 2, 3 (248 MG/M2)
     Dates: start: 201311
  3. EPORATIO [Suspect]
     Indication: ANAEMIA
     Dosage: 20000 IU
     Route: 058
     Dates: start: 20131213, end: 20131213

REACTIONS (1)
  - Colitis [Unknown]
